FAERS Safety Report 13642643 (Version 1)
Quarter: 2017Q2

REPORT INFORMATION
  Report Type: Spontaneous
  Country: FR (occurrence: FR)
  Receive Date: 20170612
  Receipt Date: 20170612
  Transmission Date: 20170830
  Serious: Yes (Hospitalization, Disabling, Other)
  Sender: FDA-Public Use
  Company Number: FR-BAYER-2017-104707

PATIENT
  Age: 60 Year
  Sex: Female

DRUGS (1)
  1. NEXAVAR [Suspect]
     Active Substance: SORAFENIB
     Indication: RENAL CANCER METASTATIC
     Dosage: UNK
     Dates: start: 201705

REACTIONS (9)
  - Acne [None]
  - Extremity necrosis [None]
  - Impaired work ability [None]
  - Mobility decreased [None]
  - Pyrexia [None]
  - Rash macular [None]
  - Erythema [None]
  - Skin erosion [None]
  - Loss of personal independence in daily activities [None]

NARRATIVE: CASE EVENT DATE: 20170524
